FAERS Safety Report 5107258-4 (Version None)
Quarter: 2006Q3

REPORT INFORMATION
  Report Type: 
  Country: None (occurrence: None)
  Receive Date: 20060914
  Receipt Date: 20060830
  Transmission Date: 20061208
  Serious: Yes (Other)
  Sender: FDA-Public Use
  Company Number: 2006US001991

PATIENT
  Age: 72 Year
  Sex: Male

DRUGS (2)
  1. VESICARE [Suspect]
     Indication: HYPERTONIC BLADDER
     Dosage: 5 MG, ORAL
     Route: 048
     Dates: start: 20060701, end: 20060822
  2. VERAPAMIL [Concomitant]

REACTIONS (2)
  - DETACHED RETINA REPAIR [None]
  - DRY EYE [None]
